FAERS Safety Report 18929178 (Version 1)
Quarter: 2021Q1

REPORT INFORMATION
  Report Type: Report from Study
  Country: CO (occurrence: CO)
  Receive Date: 20210223
  Receipt Date: 20210223
  Transmission Date: 20210420
  Serious: Yes (Other)
  Sender: FDA-Public Use
  Company Number: NVSC2021CO002908

PATIENT
  Sex: Male

DRUGS (2)
  1. VOTRIENT [Suspect]
     Active Substance: PAZOPANIB HYDROCHLORIDE
     Dosage: 600 MG, QD (2 IN THE MORNING AND ONE AT NIGHT)
     Route: 048
     Dates: start: 202012
  2. VOTRIENT [Suspect]
     Active Substance: PAZOPANIB HYDROCHLORIDE
     Indication: METASTATIC RENAL CELL CARCINOMA
     Dosage: 400 MG, QD
     Route: 048
     Dates: end: 202012

REACTIONS (6)
  - Hemiplegia [Unknown]
  - Sleep disorder [Unknown]
  - Dizziness [Unknown]
  - Ill-defined disorder [Unknown]
  - Fall [Unknown]
  - Incorrect dose administered [Unknown]
